FAERS Safety Report 9349943 (Version 2)
Quarter: 2013Q3

REPORT INFORMATION
  Report Type: Report from Study
  Country: AR (occurrence: AR)
  Receive Date: 20130614
  Receipt Date: 20130725
  Transmission Date: 20140515
  Serious: Yes (Hospitalization, Other)
  Sender: FDA-Public Use
  Company Number: PHHO2013AR007589

PATIENT
  Age: 64 Year
  Sex: Male
  Weight: 115 kg

DRUGS (8)
  1. ALISKIREN [Suspect]
     Indication: CARDIAC FAILURE
     Dosage: UNK
     Route: 048
     Dates: start: 20100607
  2. ENALAPRIL [Suspect]
     Indication: CARDIAC FAILURE
     Dosage: UNK
     Route: 048
     Dates: start: 20100607
  3. DONEPEZIL [Suspect]
  4. DILATREND [Concomitant]
     Dosage: 25 MG, BID
     Route: 048
     Dates: start: 20100730
  5. FUROSEMIDA [Concomitant]
     Indication: CARDIAC FAILURE
     Dosage: 40 MG, BID
     Route: 048
     Dates: start: 20120928
  6. ESZOPICLONE [Concomitant]
     Dosage: 2 MG, PRN
     Route: 048
     Dates: start: 20120625
  7. NIFELAT [Concomitant]
     Dosage: 10 MG, BID
     Route: 048
     Dates: start: 20110722
  8. ACENOCOUMAROL [Concomitant]
     Indication: ATRIAL FIBRILLATION
     Dosage: 4 MG, BID
     Route: 048
     Dates: start: 20110920

REACTIONS (1)
  - Blood creatine phosphokinase increased [Recovering/Resolving]
